FAERS Safety Report 20875578 (Version 1)
Quarter: 2022Q2

REPORT INFORMATION
  Report Type: Spontaneous
  Country: US (occurrence: US)
  Receive Date: 20220526
  Receipt Date: 20220526
  Transmission Date: 20220721
  Serious: Yes (Hospitalization, Other)
  Sender: FDA-Public Use
  Company Number: US-TWI PHARMACEUTICAL, INC-2022SCTW000052

PATIENT

DRUGS (3)
  1. CYCLOBENZAPRINE HYDROCHLORIDE [Suspect]
     Active Substance: CYCLOBENZAPRINE HYDROCHLORIDE
     Indication: Back pain
     Dosage: UNK, PRN
     Route: 065
  2. METHIMAZOLE [Concomitant]
     Active Substance: METHIMAZOLE
     Indication: Hyperthyroidism
  3. ATENOLOL [Concomitant]
     Active Substance: ATENOLOL
     Indication: Hyperthyroidism

REACTIONS (3)
  - Thyrotoxic cardiomyopathy [Recovered/Resolved]
  - Thyrotoxic crisis [Recovered/Resolved]
  - Contraindicated product administered [Unknown]
